FAERS Safety Report 11681099 (Version 3)
Quarter: 2015Q4

REPORT INFORMATION
  Report Type: Spontaneous
  Country: US (occurrence: US)
  Receive Date: 20151027
  Receipt Date: 20151110
  Transmission Date: 20160304
  Serious: No
  Sender: FDA-Public Use
  Company Number: US-ELI_LILLY_AND_COMPANY-US201007003355

PATIENT
  Sex: Female

DRUGS (5)
  1. FORTEO [Suspect]
     Active Substance: TERIPARATIDE
     Indication: OSTEOPOROSIS
     Dosage: 20 UG, DAILY (1/D)
  2. FORTEO [Suspect]
     Active Substance: TERIPARATIDE
     Dosage: 20 UG, DAILY (1/D)
     Route: 065
  3. ASPIRIN. [Concomitant]
     Active Substance: ASPIRIN
  4. CALCIUM [Concomitant]
     Active Substance: CALCIUM
     Indication: MINERAL SUPPLEMENTATION
  5. FORTEO [Suspect]
     Active Substance: TERIPARATIDE
     Dosage: 20 UG, QD

REACTIONS (11)
  - Vitamin D deficiency [Unknown]
  - Constipation [Not Recovered/Not Resolved]
  - Muscular weakness [Unknown]
  - Injection site bruising [Unknown]
  - Bone pain [Unknown]
  - Fatigue [Not Recovered/Not Resolved]
  - Energy increased [Unknown]
  - Arthralgia [Not Recovered/Not Resolved]
  - Blood calcium increased [Unknown]
  - Pain in extremity [Unknown]
  - Muscle spasms [Unknown]
